FAERS Safety Report 20711289 (Version 1)
Quarter: 2022Q2

REPORT INFORMATION
  Report Type: Spontaneous
  Country: US (occurrence: None)
  Receive Date: 20220414
  Receipt Date: 20220414
  Transmission Date: 20220720
  Serious: No
  Sender: FDA-Public Use
  Company Number: None

PATIENT
  Age: 68 Year
  Sex: Female
  Weight: 65.77 kg

DRUGS (14)
  1. VERZENIO [Suspect]
     Active Substance: ABEMACICLIB
     Indication: Breast cancer
     Dosage: FREQUENCY : TWICE A DAY;?
     Route: 048
     Dates: start: 20220127
  2. ALBUTEROL [Suspect]
     Active Substance: ALBUTEROL
  3. ANASTROZOLE [Suspect]
     Active Substance: ANASTROZOLE
  4. BONIVA [Suspect]
     Active Substance: IBANDRONATE SODIUM
  5. ESZOPICLONE [Suspect]
     Active Substance: ESZOPICLONE
  6. FEXOFENADINE [Suspect]
     Active Substance: FEXOFENADINE HYDROCHLORIDE
  7. FLONASE [Suspect]
     Active Substance: FLUTICASONE PROPIONATE
  8. LEVOTHYROXINE [Suspect]
     Active Substance: LEVOTHYROXINE
  9. MUPIROCIN [Suspect]
     Active Substance: MUPIROCIN
  10. PROCHLORPERAZINE [Suspect]
     Active Substance: PROCHLORPERAZINE
  11. TREXIMET [Suspect]
     Active Substance: NAPROXEN SODIUM\SUMATRIPTAN SUCCINATE
  12. TRIAMCINOLONE [Suspect]
     Active Substance: TRIAMCINOLONE
  13. VERZENIO [Suspect]
     Active Substance: ABEMACICLIB
  14. VOLTAREN [Suspect]
     Active Substance: DICLOFENAC SODIUM

REACTIONS (3)
  - Asthenia [None]
  - Ageusia [None]
  - Loss of personal independence in daily activities [None]
